FAERS Safety Report 8607284-4 (Version None)
Quarter: 2012Q3

REPORT INFORMATION
  Report Type: 
  Country: None (occurrence: None)
  Receive Date: 20120807
  Receipt Date: 20120723
  Transmission Date: 20120928
  Serious: Yes (Other)
  Sender: FDA-Public Use
  Company Number: ABR_00580_2012

PATIENT
  Sex: Female

DRUGS (3)
  1. CEFAZOLIN [Suspect]
     Indication: PRODUCT USED FOR UNKNOWN INDICATION
     Dosage: (2 G DAILY)
  2. RITODRINE HYDROCHLORIDE [Suspect]
     Indication: PRODUCT USED FOR UNKNOWN INDICATION
     Dosage: (DF)
  3. ERYTHROMYCIN [Suspect]
     Indication: PRODUCT USED FOR UNKNOWN INDICATION
     Dosage: (400 MG DAILY)

REACTIONS (13)
  - PYREXIA [None]
  - CAESAREAN SECTION [None]
  - WHITE BLOOD CELL COUNT INCREASED [None]
  - PREMATURE DELIVERY [None]
  - ESCHERICHIA TEST POSITIVE [None]
  - MATERNAL EXPOSURE DURING PREGNANCY [None]
  - CHORIOAMNIONITIS [None]
  - INTRAVENTRICULAR HAEMORRHAGE [None]
  - WOUND DEHISCENCE [None]
  - SUTURE RELATED COMPLICATION [None]
  - PERITONITIS [None]
  - PURULENCE [None]
  - C-REACTIVE PROTEIN INCREASED [None]
